FAERS Safety Report 23246355 (Version 1)
Quarter: 2023Q4

REPORT INFORMATION
  Report Type: Spontaneous
  Country: GB (occurrence: GB)
  Receive Date: 20231130
  Receipt Date: 20231130
  Transmission Date: 20240110
  Serious: Yes (Death, Other)
  Sender: FDA-Public Use
  Company Number: GB-AMGEN-GBRSP2023210831

PATIENT

DRUGS (2)
  1. BEVACIZUMAB [Suspect]
     Active Substance: BEVACIZUMAB
     Indication: Hepatocellular carcinoma
     Dosage: UNK
     Route: 065
  2. ATEZOLIZUMAB [Suspect]
     Active Substance: ATEZOLIZUMAB
     Indication: Hepatocellular carcinoma
     Dosage: UNK
     Route: 065

REACTIONS (8)
  - Death [Fatal]
  - Immune-mediated hepatic disorder [Not Recovered/Not Resolved]
  - Immune-mediated adverse reaction [Unknown]
  - Immune-mediated lung disease [Unknown]
  - Hepatic failure [Unknown]
  - Immune-mediated endocrinopathy [Unknown]
  - Immune-mediated neurological disorder [Unknown]
  - Off label use [Unknown]
